FAERS Safety Report 15682624 (Version 1)
Quarter: 2018Q4

REPORT INFORMATION
  Report Type: Spontaneous
  Country: US (occurrence: US)
  Receive Date: 20181203
  Receipt Date: 20181203
  Transmission Date: 20190205
  Serious: No
  Sender: FDA-Public Use
  Company Number: US-TAKEDA-2018TUS034117

PATIENT
  Age: 30 Year
  Sex: Male

DRUGS (4)
  1. XELJANZ [Concomitant]
     Active Substance: TOFACITINIB CITRATE
     Dosage: 10 MG, BID
     Dates: start: 20180626
  2. ASACOL [Concomitant]
     Active Substance: MESALAMINE
     Dosage: 800 MG, UNK
  3. ENTYVIO [Suspect]
     Active Substance: VEDOLIZUMAB
     Indication: COLITIS ULCERATIVE
     Dosage: UNK
     Route: 065
  4. UCERIS [Concomitant]
     Active Substance: BUDESONIDE
     Dosage: 90 MG, UNK

REACTIONS (1)
  - Treatment failure [Unknown]
